FAERS Safety Report 15436399 (Version 8)
Quarter: 2019Q3

REPORT INFORMATION
  Report Type: Spontaneous
  Country: US (occurrence: US)
  Receive Date: 20180927
  Receipt Date: 20190927
  Transmission Date: 20191004
  Serious: Yes (Hospitalization)
  Sender: FDA-Public Use
  Company Number: US-PFIZER INC-2016354959

PATIENT
  Age: 50 Year
  Sex: Male
  Weight: 53.5 kg

DRUGS (19)
  1. ZANTAC [Concomitant]
     Active Substance: RANITIDINE HYDROCHLORIDE
     Dosage: 150 MG, 2X/DAY
     Route: 048
     Dates: start: 20161209
  2. TUMS [Concomitant]
     Active Substance: CALCIUM CARBONATE
     Indication: REFLUX GASTRITIS
     Dosage: 500 MG, AS NEEDED (ONE TIME DAILY AT BEDTIME AS NEEDED)
     Route: 048
  3. VFEND [Suspect]
     Active Substance: VORICONAZOLE
     Indication: ASPERGILLUS INFECTION
     Dosage: 300 MG, 2X/DAY (50 MG TWO TABLETS WITH ONE 200MG)
     Route: 048
     Dates: start: 2009
  4. TUMS [Concomitant]
     Active Substance: CALCIUM CARBONATE
     Dosage: UNK
     Dates: start: 2008
  5. FLOVENT HFA [Concomitant]
     Active Substance: FLUTICASONE PROPIONATE
     Dosage: 1 DF, 2X/DAY [220MCG 1 PUFF TWICE DAILY]
     Dates: start: 2009
  6. FLOVENT HFA [Concomitant]
     Active Substance: FLUTICASONE PROPIONATE
     Dosage: 1 DF, 2X/DAY [(220 MCG/ACT), 1 PUFF 2 TIMES DAILY]
     Route: 055
     Dates: start: 20160921
  7. VFEND [Suspect]
     Active Substance: VORICONAZOLE
     Indication: BACTERIAL INFECTION
     Dosage: 300 MG, 2X/DAY (50 MG TWO TABLETS WITH ONE 200MG)
     Route: 048
     Dates: start: 20161006
  8. LISINOPRIL. [Concomitant]
     Active Substance: LISINOPRIL
     Dosage: 10 MG, DAILY
  9. VFEND [Suspect]
     Active Substance: VORICONAZOLE
     Indication: PROPHYLAXIS
     Dosage: 300 MG, 2X/DAY (50 MG TWO TABLETS WITH ONE 200MG)
     Route: 048
     Dates: start: 20151105
  10. ALBUTEROL HFA [Concomitant]
     Active Substance: ALBUTEROL SULFATE
     Indication: WHEEZING
     Dosage: UNK
     Dates: start: 2008
  11. CODEINE [Concomitant]
     Active Substance: CODEINE
     Dosage: 0.5 DF, AS NEEDED (TAKE 0.5 TABS BY MOUTH EVERY 6 HOURS AS NEEDED)
     Route: 048
     Dates: start: 20140522
  12. RANITIDINE. [Concomitant]
     Active Substance: RANITIDINE
     Dosage: 300 MG, DAILY
  13. ALBUTEROL HFA [Concomitant]
     Active Substance: ALBUTEROL SULFATE
     Dosage: 2 DF, AS NEEDED [108 (90 BASE) MCG/ACT, INHALE 2 PUFFS EVERY 4-6 HOURS]
     Route: 055
     Dates: start: 20130409
  14. ZANTAC [Concomitant]
     Active Substance: RANITIDINE HYDROCHLORIDE
     Dosage: UNK
     Dates: start: 2009
  15. SPIRIVA [Concomitant]
     Active Substance: TIOTROPIUM BROMIDE MONOHYDRATE
     Dosage: 18 UG, 1X/DAY [USE AS DIRECTED]
     Route: 055
     Dates: start: 20160522, end: 201902
  16. VFEND [Suspect]
     Active Substance: VORICONAZOLE
     Indication: MYCOBACTERIUM AVIUM COMPLEX INFECTION
     Dosage: 300 MG, 2X/DAY (200 MG 1 TABLET TWO TIMES DAILY ALONG WITH 2 TABLETS OF 50MG FOR A TOTAL OF 300MG)
  17. VFEND [Suspect]
     Active Substance: VORICONAZOLE
     Dosage: 500 MG, DAILY (200MG TABLET, 1 TABLET 2 TIMES DAILY, 50MG TABLET, 2 TABLETS A DAY)
  18. CODEINE [Concomitant]
     Active Substance: CODEINE
     Dosage: UNK
     Dates: start: 2008
  19. ASPIRIN [ACETYLSALICYLIC ACID] [Concomitant]
     Active Substance: ASPIRIN
     Dosage: 81 MG, DAILY

REACTIONS (1)
  - Mitral valve disease [Recovering/Resolving]

NARRATIVE: CASE EVENT DATE: 201806
